FAERS Safety Report 4930415-4 (Version None)
Quarter: 2006Q1

REPORT INFORMATION
  Report Type: 
  Country: None (occurrence: None)
  Receive Date: 20060302
  Receipt Date: 20060228
  Transmission Date: 20060701
  Serious: Yes (Death, Other)
  Sender: FDA-Public Use
  Company Number: NSADSS2002008699

PATIENT
  Sex: Male
  Weight: 80 kg

DRUGS (5)
  1. REMICADE [Suspect]
     Route: 041
     Dates: start: 20011024
  2. REMICADE [Suspect]
     Route: 041
     Dates: start: 20011024
  3. REMICADE [Suspect]
     Route: 041
     Dates: start: 20011024
  4. MEDROL [Concomitant]
     Route: 048
  5. METHOTREXATE [Concomitant]
     Route: 048

REACTIONS (1)
  - DISSEMINATED TUBERCULOSIS [None]
